FAERS Safety Report 7125400-0 (Version None)
Quarter: 2010Q4

REPORT INFORMATION
  Report Type: 
  Country: None (occurrence: None)
  Receive Date: 20101129
  Receipt Date: 20101118
  Transmission Date: 20110411
  Serious: Yes (Other)
  Sender: FDA-Public Use
  Company Number: US-ROCHE-722550

PATIENT
  Sex: Female
  Weight: 47.6 kg

DRUGS (3)
  1. ACCUTANE [Suspect]
     Indication: ACNE
     Dosage: RECEIVED THERAPY TWICE
     Route: 048
     Dates: start: 19980101, end: 19990101
  2. ACCUTANE [Suspect]
     Route: 048
     Dates: start: 20000306, end: 20000501
  3. ADVIL [Concomitant]

REACTIONS (18)
  - ABDOMINAL PAIN [None]
  - BLOOD CHOLESTEROL INCREASED [None]
  - BLOOD TRIGLYCERIDES INCREASED [None]
  - CHAPPED LIPS [None]
  - CLOSTRIDIUM DIFFICILE COLITIS [None]
  - COLITIS ULCERATIVE [None]
  - DEPRESSION [None]
  - DRUG HYPERSENSITIVITY [None]
  - DRY SKIN [None]
  - GASTROINTESTINAL INJURY [None]
  - HAEMORRHOIDS [None]
  - INFLAMMATORY BOWEL DISEASE [None]
  - IRITIS [None]
  - IRRITABLE BOWEL SYNDROME [None]
  - LIP DRY [None]
  - NAUSEA [None]
  - PEPTIC ULCER [None]
  - RECTAL HAEMORRHAGE [None]
